FAERS Safety Report 5011848-7 (Version None)
Quarter: 2006Q2

REPORT INFORMATION
  Report Type: 
  Country: None (occurrence: None)
  Receive Date: 20060526
  Receipt Date: 20060516
  Transmission Date: 20061013
  Serious: Yes (Other)
  Sender: FDA-Public Use
  Company Number: US-SANOFI-SYNTHELABO-A03200603203

PATIENT
  Sex: Female

DRUGS (1)
  1. AMBIEN [Suspect]
     Indication: INSOMNIA
     Route: 048
     Dates: start: 20060221, end: 20060222

REACTIONS (3)
  - ACTIVITIES OF DAILY LIVING IMPAIRED [None]
  - HAND FRACTURE [None]
  - LOSS OF CONSCIOUSNESS [None]
